FAERS Safety Report 4646348-7 (Version None)
Quarter: 2005Q2

REPORT INFORMATION
  Report Type: 
  Country: None (occurrence: None)
  Receive Date: 20050425
  Receipt Date: 20050411
  Transmission Date: 20051028
  Serious: Yes (Hospitalization)
  Sender: FDA-Public Use
  Company Number: THYM-10471

PATIENT
  Age: 35 Year
  Sex: Female

DRUGS (1)
  1. THYMOGLOBULIN [Suspect]
     Indication: KIDNEY TRANSPLANT REJECTION
     Dosage: 1.5 MG/KG QD IV
     Route: 042
     Dates: start: 20050402, end: 20050410

REACTIONS (2)
  - ANTIBODY TEST POSITIVE [None]
  - SERUM SICKNESS [None]
